FAERS Safety Report 6953666-6 (Version None)
Quarter: 2010Q3

REPORT INFORMATION
  Report Type: 
  Country: None (occurrence: None)
  Receive Date: 20100829
  Receipt Date: 20100617
  Transmission Date: 20110219
  Serious: No
  Sender: FDA-Public Use
  Company Number: US-ABBOTT-10P-163-0652826-00

PATIENT
  Sex: Female
  Weight: 64.468 kg

DRUGS (5)
  1. NIASPAN [Suspect]
     Indication: BLOOD CHOLESTEROL INCREASED
     Dosage: EVERY NIGHT
     Dates: start: 20100602
  2. ASPIRIN [Concomitant]
     Indication: PRODUCT USED FOR UNKNOWN INDICATION
     Dosage: 1/2 HOUR BEFORE NIASPAN COATED
  3. WELCHOL [Concomitant]
     Indication: BLOOD CHOLESTEROL INCREASED
     Dates: start: 20100602
  4. MACROBID [Concomitant]
     Indication: URINARY TRACT INFECTION
  5. ATENOLOL [Concomitant]
     Indication: TACHYCARDIA
     Dates: start: 20100531

REACTIONS (3)
  - FLUSHING [None]
  - RASH [None]
  - RASH PRURITIC [None]
